FAERS Safety Report 4456515-3 (Version None)
Quarter: 2004Q3

REPORT INFORMATION
  Report Type: 
  Country: None (occurrence: None)
  Receive Date: 20040923
  Receipt Date: 20040916
  Transmission Date: 20050211
  Serious: Yes (Hospitalization)
  Sender: FDA-Public Use
  Company Number: US-JNJFOC-20040905373

PATIENT
  Sex: Male
  Weight: 82.01 kg

DRUGS (1)
  1. REMICADE [Suspect]
     Route: 042

REACTIONS (6)
  - ARTHRALGIA [None]
  - DYSSTASIA [None]
  - PYREXIA [None]
  - RED BLOOD CELL SEDIMENTATION RATE INCREASED [None]
  - REFUSAL OF TREATMENT BY PATIENT [None]
  - WHITE BLOOD CELL COUNT INCREASED [None]
